FAERS Safety Report 20095045 (Version 2)
Quarter: 2021Q4

REPORT INFORMATION
  Report Type: Spontaneous
  Country: VN (occurrence: VN)
  Receive Date: 20211122
  Receipt Date: 20211208
  Transmission Date: 20220303
  Serious: Yes (Other)
  Sender: FDA-Public Use
  Company Number: VN-ORGANON-O2111VNM002160

PATIENT
  Age: 27 Year
  Sex: Female
  Weight: 50 kg

DRUGS (3)
  1. ETONOGESTREL [Interacting]
     Active Substance: ETONOGESTREL
     Indication: Contraception
     Dosage: 1 IMPLANT AT MEDIAL SIDE OF LEFT ARM
     Route: 058
     Dates: start: 20170427, end: 20180627
  2. ETHAMBUTOL HYDROCHLORIDE\ISONIAZID\PYRAZINAMIDE\RIFAMYCIN [Interacting]
     Active Substance: ETHAMBUTOL HYDROCHLORIDE\ISONIAZID\PYRAZINAMIDE\RIFAMYCIN
     Indication: Pulmonary tuberculosis
     Dosage: UNK
     Dates: start: 2018
  3. ETHAMBUTOL\ISONIAZID\RIFAMPIN [Interacting]
     Active Substance: ETHAMBUTOL\ISONIAZID\RIFAMPIN
     Indication: Pulmonary tuberculosis
     Dosage: UNK
     Dates: start: 2018

REACTIONS (3)
  - Pregnancy with implant contraceptive [Recovered/Resolved]
  - Drug interaction [Unknown]
  - Unintended pregnancy [Recovered/Resolved]

NARRATIVE: CASE EVENT DATE: 20180101
